FAERS Safety Report 22246355 (Version 1)
Quarter: 2023Q2

REPORT INFORMATION
  Report Type: Spontaneous
  Country: US (occurrence: US)
  Receive Date: 20230424
  Receipt Date: 20230424
  Transmission Date: 20230721
  Serious: Yes (Other)
  Sender: FDA-Public Use
  Company Number: US-PFIZER INC-202300159846

PATIENT
  Age: 83 Year
  Sex: Female

DRUGS (1)
  1. PACLITAXEL [Suspect]
     Active Substance: PACLITAXEL
     Indication: Breast cancer metastatic
     Dosage: 64 MG/M2

REACTIONS (16)
  - Neuropathy peripheral [Unknown]
  - Atrial fibrillation [Unknown]
  - Arrhythmia [Unknown]
  - Insomnia [Recovering/Resolving]
  - Urinary hesitation [Recovering/Resolving]
  - Dysuria [Recovering/Resolving]
  - Chromaturia [Recovering/Resolving]
  - Urine abnormality [Recovering/Resolving]
  - Urinary tract infection [Recovering/Resolving]
  - Arthralgia [Unknown]
  - Musculoskeletal pain [Unknown]
  - Dyspnoea exertional [Unknown]
  - Diarrhoea [Unknown]
  - Hot flush [Unknown]
  - Joint swelling [Unknown]
  - Restless legs syndrome [Unknown]
